FAERS Safety Report 6275194-6 (Version None)
Quarter: 2009Q3

REPORT INFORMATION
  Report Type: 
  Country: None (occurrence: None)
  Receive Date: 20090721
  Receipt Date: 20090714
  Transmission Date: 20100115
  Serious: Yes (Death)
  Sender: FDA-Public Use
  Company Number: JP-AVENTIS-200911545JP

PATIENT
  Age: 11 Month
  Sex: Male
  Weight: 8.5 kg

DRUGS (14)
  1. CLAFORAN [Suspect]
     Route: 041
     Dates: start: 20081208, end: 20081220
  2. ROCEPHIN [Suspect]
     Route: 041
     Dates: start: 20081201, end: 20081208
  3. MEROPEN [Concomitant]
     Route: 041
     Dates: start: 20081201, end: 20081205
  4. MUCODYNE [Concomitant]
     Indication: BRONCHITIS
     Route: 048
     Dates: start: 20081202, end: 20081221
  5. MUCOSOLVAN [Concomitant]
     Indication: BRONCHITIS
     Route: 048
     Dates: start: 20081202, end: 20081221
  6. OPIUM ALKALOIDS AND DERIVATIVES [Concomitant]
     Indication: BRONCHITIS
     Route: 048
     Dates: start: 20081202, end: 20081221
  7. BENZODIAZEPINE DERIVATIVES [Concomitant]
     Indication: PAIN
     Route: 042
     Dates: start: 20081216, end: 20081216
  8. ESCRE [Concomitant]
     Indication: PAIN
     Route: 054
     Dates: start: 20081216, end: 20081216
  9. CEFDINIR [Concomitant]
     Dates: start: 20081129, end: 20081130
  10. ASVERIN                            /00465502/ [Concomitant]
     Dates: start: 20081129, end: 20081130
  11. PERIACTIN [Concomitant]
     Dates: start: 20081129, end: 20081130
  12. MIRACLID [Concomitant]
     Route: 041
     Dates: start: 20080101, end: 20080101
  13. MUCODYNE [Concomitant]
     Dates: start: 20081129, end: 20081130
  14. FAMOTIDINE [Concomitant]
     Route: 041
     Dates: start: 20080101, end: 20080101

REACTIONS (4)
  - DRUG RASH WITH EOSINOPHILIA AND SYSTEMIC SYMPTOMS [None]
  - EOSINOPHILIA [None]
  - HEPATITIS FULMINANT [None]
  - PYREXIA [None]
